FAERS Safety Report 13544685 (Version 3)
Quarter: 2018Q3

REPORT INFORMATION
  Report Type: Spontaneous
  Country: US (occurrence: US)
  Receive Date: 20170515
  Receipt Date: 20180702
  Transmission Date: 20181010
  Serious: Yes (Hospitalization, Other)
  Sender: FDA-Public Use
  Company Number: US-MALLINCKRODT-T201701433

PATIENT
  Age: 70 Year
  Sex: Female

DRUGS (29)
  1. H.P. ACTHAR [Suspect]
     Active Substance: CORTICOTROPIN
     Indication: PULMONARY SARCOIDOSIS
     Dosage: 40 UNITS / 0.5 ML, TWICE WEEKLY, TUES/FRI
     Route: 058
     Dates: start: 20160311
  2. CELECOXIB. [Concomitant]
     Active Substance: CELECOXIB
     Dosage: CAP 200MG
     Dates: start: 20160513
  3. GRALISE [Concomitant]
     Active Substance: GABAPENTIN
     Dosage: TAB 600MG
     Dates: start: 20160513
  4. TRIAMCINOLON [Concomitant]
     Dosage: CRE 0.1%
     Dates: start: 20160513
  5. LASIX [Concomitant]
     Active Substance: FUROSEMIDE
  6. JANUMET [Concomitant]
     Active Substance: METFORMIN HYDROCHLORIDE\SITAGLIPTIN PHOSPHATE
     Dosage: TAB 50?500MG
     Dates: start: 20160513
  7. HYDROCHLOROTH [Concomitant]
     Active Substance: HYDROCHLOROTHIAZIDE
     Dosage: TAB 50MG
     Dates: start: 20160513
  8. FOLIC ACID. [Concomitant]
     Active Substance: FOLIC ACID
     Dosage: TAB 1MG
     Dates: start: 20160513
  9. PROAIR HFA [Concomitant]
     Active Substance: ALBUTEROL SULFATE
     Dosage: UNK
     Dates: start: 20160513
  10. METRONIDAZOLE. [Concomitant]
     Active Substance: METRONIDAZOLE
     Dosage: TAB 250MG
     Dates: start: 20160513
  11. METOPROLOL. [Concomitant]
     Active Substance: METOPROLOL
     Dosage: TAB 50MG ER
     Dates: start: 20160513
  12. NITROFURANTIN [Concomitant]
     Active Substance: NITROFURANTOIN
     Dosage: CAP 100MG
     Dates: start: 20160513
  13. NEXIUM [Concomitant]
     Active Substance: ESOMEPRAZOLE MAGNESIUM
     Dosage: CAP 20MG
     Dates: start: 20160513
  14. IBUPROFEN AL [Concomitant]
     Active Substance: IBUPROFEN
     Dosage: TAB 200MG
     Dates: start: 20160513
  15. METFORMIN [Concomitant]
     Active Substance: METFORMIN HYDROCHLORIDE
     Dosage: TAB 500MG
     Dates: start: 20160513
  16. ESCITALOPRAM [Concomitant]
     Active Substance: ESCITALOPRAM OXALATE
     Dosage: TAB 10MG
     Dates: start: 20160513
  17. H.P. ACTHAR [Suspect]
     Active Substance: CORTICOTROPIN
     Indication: POLYNEUROPATHY
     Dosage: 80 UNITS (1ML) TWICE WEEKLY (WEDNESDAY, SUNDAY)
     Route: 058
     Dates: start: 20160309
  18. LEVOFLOXACIN. [Concomitant]
     Active Substance: LEVOFLOXACIN
     Dosage: TAB 750MG
     Dates: start: 20160513
  19. SUPREP BOWEL PREP [Concomitant]
     Active Substance: MAGNESIUM SULFATE\POTASSIUM SULFATE\SODIUM SULFATE
     Dosage: UNK
     Dates: start: 20160513
  20. SYNTHROID [Concomitant]
     Active Substance: LEVOTHYROXINE SODIUM
     Dosage: TAB 125MCG
     Dates: start: 20160513
  21. METHOTREXATE. [Concomitant]
     Active Substance: METHOTREXATE
     Dosage: TAB 2.5MG
     Dates: start: 20160513
  22. AMITIZA [Concomitant]
     Active Substance: LUBIPROSTONE
     Dosage: CAP 24MCG
     Dates: start: 20160513
  23. XIGDUO XR [Concomitant]
     Active Substance: DAPAGLIFLOZIN PROPANEDIOL\METFORMIN HYDROCHLORIDE
     Dosage: TAB 5?500MG XR
     Dates: start: 20160513
  24. FLUTICASONE. [Concomitant]
     Active Substance: FLUTICASONE
     Dosage: SPR 50MCG
     Dates: start: 20160513
  25. ATORVASTATIN [Concomitant]
     Active Substance: ATORVASTATIN
     Dosage: TAB 40MG
     Dates: start: 20160513
  26. FLUCONAZOLE. [Concomitant]
     Active Substance: FLUCONAZOLE
     Dosage: TAB 100MG
     Dates: start: 20160513
  27. NOVOLOG [Concomitant]
     Active Substance: INSULIN ASPART
     Dosage: UNK
     Dates: start: 20160513
  28. TRESIBA [Concomitant]
     Active Substance: INSULIN DEGLUDEC
     Dosage: INJ 100UNIT
     Dates: start: 20160513
  29. MYRBETRIQ [Concomitant]
     Active Substance: MIRABEGRON
     Dosage: TAB 25MG
     Dates: start: 20160513

REACTIONS (9)
  - Headache [Not Recovered/Not Resolved]
  - Sarcoidosis [Recovering/Resolving]
  - Weight increased [Unknown]
  - Chest pain [Recovering/Resolving]
  - Cough [Not Recovered/Not Resolved]
  - Swelling [Not Recovered/Not Resolved]
  - Dyspnoea [Unknown]
  - Hirsutism [Not Recovered/Not Resolved]
  - Blood glucose increased [Not Recovered/Not Resolved]

NARRATIVE: CASE EVENT DATE: 2017
